FAERS Safety Report 10202009 (Version 1)
Quarter: 2014Q2

REPORT INFORMATION
  Report Type: Spontaneous
  Country: US (occurrence: US)
  Receive Date: 20140528
  Receipt Date: 20140528
  Transmission Date: 20141212
  Serious: Yes (Other)
  Sender: FDA-Public Use
  Company Number: US-RB-066221-14

PATIENT
  Age: 52 Year
  Sex: Female

DRUGS (1)
  1. MUCINEX SINUS MAX DAY/NIGHT CAPLETS [Suspect]
     Indication: PRODUCT USED FOR UNKNOWN INDICATION
     Dosage: TOOK 1 CAPLET ON 21-MAY-2014
     Route: 048
     Dates: start: 20140521

REACTIONS (2)
  - Agitation [Recovering/Resolving]
  - Restlessness [Recovering/Resolving]
